FAERS Safety Report 7762620-6 (Version None)
Quarter: 2011Q3

REPORT INFORMATION
  Report Type: 
  Country: None (occurrence: None)
  Receive Date: 20110920
  Receipt Date: 20110914
  Transmission Date: 20111222
  Serious: Yes (Death, Hospitalization, Disabling)
  Sender: FDA-Public Use
  Company Number: JP-GLAXOSMITHKLINE-B0732239A

PATIENT
  Sex: Female
  Weight: 40 kg

DRUGS (66)
  1. ZOVIRAX [Suspect]
     Dosage: 400MG PER DAY
     Route: 048
     Dates: start: 20110509, end: 20110511
  2. ZOVIRAX [Suspect]
     Indication: HERPES ZOSTER
     Route: 042
     Dates: start: 20110503, end: 20110505
  3. URSO 250 [Concomitant]
     Route: 048
  4. SULFAMETHOXAZOLE [Concomitant]
     Route: 048
  5. FAMOTIDINE [Concomitant]
     Route: 048
  6. KETOPROFEN [Concomitant]
     Route: 062
  7. PROGRAF [Concomitant]
     Route: 042
  8. FOY [Concomitant]
     Route: 042
  9. GANCICLOVIR [Concomitant]
     Route: 042
  10. PROMAC [Concomitant]
     Route: 048
  11. PROGRAF [Concomitant]
     Route: 048
  12. VFEND [Concomitant]
     Route: 048
  13. ACETAMINOPHEN [Concomitant]
     Indication: PYREXIA
     Route: 048
  14. UNKNOWN DRUG [Concomitant]
     Indication: SOMNOLENCE
     Route: 048
  15. UNKNOWN DRUG [Concomitant]
     Route: 042
  16. KYTRIL [Concomitant]
     Route: 042
  17. METHOTREXATE [Concomitant]
     Route: 042
  18. SODIUM BICARBONATE [Concomitant]
     Route: 042
  19. ZOVIRAX [Suspect]
     Dosage: 800MG PER DAY
     Route: 048
     Dates: start: 20110508, end: 20110508
  20. ZOVIRAX [Suspect]
     Dosage: 200MG PER DAY
     Route: 048
     Dates: start: 20110613
  21. ALLOPURINOL [Concomitant]
     Route: 048
  22. ITRACONAZOLE [Concomitant]
     Route: 048
  23. PREDNISOLONE [Concomitant]
     Route: 048
  24. FUNGUARD [Concomitant]
     Route: 042
  25. LANSOPRAZOLE [Concomitant]
     Route: 042
  26. MIDAZOLAM HCL [Concomitant]
     Route: 042
  27. KETALAR [Concomitant]
     Route: 042
  28. ZOVIRAX [Suspect]
     Dosage: 600MG PER DAY
     Route: 048
     Dates: start: 20110526, end: 20110612
  29. TECIPUL [Concomitant]
     Route: 048
  30. ADALAT [Concomitant]
     Indication: BLOOD PRESSURE INCREASED
     Route: 048
  31. MOTILIUM [Concomitant]
     Indication: SOMNOLENCE
     Route: 048
  32. KALIMATE [Concomitant]
     Route: 048
  33. MIRACLID [Concomitant]
     Route: 042
  34. NEO-MINOPHAGEN-C [Concomitant]
     Route: 042
  35. PRIMPERAN TAB [Concomitant]
     Route: 042
  36. THIOPENTAL SODIUM [Concomitant]
     Route: 042
  37. METHYLPREDNISOLONE SODIUM SUCCINATE [Concomitant]
     Route: 042
  38. ZOVIRAX [Suspect]
     Indication: PROPHYLAXIS
     Dosage: 600MG PER DAY
     Route: 048
     Dates: start: 20110316, end: 20110502
  39. ALLOID G [Concomitant]
     Route: 048
  40. PROGRAF [Concomitant]
     Route: 048
  41. PENTAZOCINE LACTATE [Concomitant]
     Route: 048
  42. MYCOPHENOLATE MOFETIL (CELLCEPT) [Concomitant]
     Route: 048
  43. MEROPENEM [Concomitant]
     Route: 042
  44. NALOXONE HCL [Concomitant]
     Route: 042
  45. PREDNISOLONE [Concomitant]
     Route: 048
  46. FUROSEMIDE [Concomitant]
     Route: 048
  47. PRIMPERAN TAB [Concomitant]
     Indication: SOMNOLENCE
     Route: 048
  48. GASMOTIN [Concomitant]
     Route: 048
  49. BUPRENORPHINE HCL [Concomitant]
     Route: 042
  50. ZOVIRAX [Suspect]
     Dosage: 100MG PER DAY
     Route: 048
     Dates: start: 20110512, end: 20110525
  51. CANDESARTAN CILEXETIL [Concomitant]
     Route: 048
  52. LYRICA [Concomitant]
     Route: 048
  53. PROMAC [Concomitant]
     Route: 048
  54. LENDORMIN [Concomitant]
     Route: 048
  55. FUROSEMIDE [Concomitant]
     Route: 042
  56. DOPAMINE HCL [Concomitant]
     Route: 042
  57. ZOVIRAX [Suspect]
     Dosage: 1200MG PER DAY
     Route: 048
     Dates: start: 20110506, end: 20110508
  58. AMLODIPINE [Concomitant]
     Route: 048
  59. LOXONIN [Concomitant]
     Indication: PAIN
     Route: 048
  60. SILECE [Concomitant]
     Route: 048
  61. SOLU-MEDROL [Concomitant]
     Route: 042
  62. ATARAX [Concomitant]
     Route: 042
  63. PREDNISOLONE [Concomitant]
     Route: 042
  64. PENTAZOCINE LACTATE [Concomitant]
     Route: 042
  65. SOLU-CORTEF [Concomitant]
     Route: 042
  66. ZOSYN [Concomitant]
     Route: 042

REACTIONS (14)
  - QUADRIPLEGIA [None]
  - ENCEPHALITIS [None]
  - MYOSITIS [None]
  - PAIN IN EXTREMITY [None]
  - BLINDNESS CORTICAL [None]
  - VISUAL IMPAIRMENT [None]
  - RENAL IMPAIRMENT [None]
  - POLYOMAVIRUS TEST POSITIVE [None]
  - DEHYDRATION [None]
  - HAEMATURIA [None]
  - PANCREATITIS ACUTE [None]
  - MUSCULAR WEAKNESS [None]
  - ABULIA [None]
  - GRAFT VERSUS HOST DISEASE [None]
